FAERS Safety Report 11157530 (Version 4)
Quarter: 2018Q3

REPORT INFORMATION
  Report Type: Spontaneous
  Country: FR (occurrence: FR)
  Receive Date: 20150603
  Receipt Date: 20180928
  Transmission Date: 20181010
  Serious: Yes (Death, Hospitalization)
  Sender: FDA-Public Use
  Company Number: FR-009507513-1506FRA000749

PATIENT
  Age: 95 Year
  Sex: Female
  Weight: 45 kg

DRUGS (10)
  1. VENLAFAXINE HYDROCHLORIDE. [Suspect]
     Active Substance: VENLAFAXINE HYDROCHLORIDE
     Indication: DEPRESSION
     Dosage: 37.5 MG, QD (ALSO REPORTED AS: 2X/DAY)
     Route: 048
     Dates: end: 20150228
  2. TRANSIPEG [Concomitant]
     Dosage: UNK
  3. ODRIK [Suspect]
     Active Substance: TRANDOLAPRIL
     Indication: HYPERTENSION
     Dosage: 4 MG, DAILY
     Route: 048
     Dates: end: 20150228
  4. DOLIPRANE [Suspect]
     Active Substance: ACETAMINOPHEN
     Indication: PRODUCT USED FOR UNKNOWN INDICATION
     Dosage: 500 MG, QD (ALSO REPORTED AS: EVERY 4 HRS)
     Route: 048
     Dates: end: 20150228
  5. FUMAFER [Suspect]
     Active Substance: FERROUS FUMARATE
     Dosage: 3 DF, DAILY
     Route: 048
     Dates: end: 20150220
  6. KARDEGIC [Suspect]
     Active Substance: ASPIRIN DL-LYSINE
     Indication: ATRIAL FIBRILLATION
     Dosage: 75 MG, DAILY
     Route: 048
     Dates: end: 20150228
  7. CORDARONE [Suspect]
     Active Substance: AMIODARONE HYDROCHLORIDE
     Indication: ATRIAL FIBRILLATION
     Dosage: 200 MG, DAILY
     Route: 048
     Dates: end: 20150228
  8. NORSET [Suspect]
     Active Substance: MIRTAZAPINE
     Indication: PRODUCT USED FOR UNKNOWN INDICATION
     Dosage: 30 MG, DAILY
     Route: 048
     Dates: start: 20150228, end: 20150228
  9. MODOPAR [Suspect]
     Active Substance: BENSERAZIDE HYDROCHLORIDE\LEVODOPA
     Indication: PARKINSONISM
     Dosage: 62.5 MG, QD (ALSO REPORTED AS: 3X/DAY)
     Route: 048
     Dates: end: 20150228
  10. LORAZEPAM. [Suspect]
     Active Substance: LORAZEPAM
     Indication: ANXIETY
     Dosage: 2 DF, DAILY
     Route: 048
     Dates: end: 20150228

REACTIONS (2)
  - Cerebellar haematoma [Fatal]
  - Drug administration error [Fatal]

NARRATIVE: CASE EVENT DATE: 20150301
